FAERS Safety Report 21368200 (Version 1)
Quarter: 2022Q3

REPORT INFORMATION
  Report Type: Spontaneous
  Country: US (occurrence: US)
  Receive Date: 20220923
  Receipt Date: 20220923
  Transmission Date: 20221027
  Serious: No
  Sender: FDA-Public Use
  Company Number: US-SA-SAC20220921001009

PATIENT
  Age: 74 Year
  Sex: Female

DRUGS (3)
  1. DUPIXENT [Suspect]
     Active Substance: DUPILUMAB
     Indication: Dermatitis atopic
     Dosage: 300 MG, QOW
     Route: 058
  2. OXYCODONE [Concomitant]
     Active Substance: OXYCODONE
     Dosage: UNK, 6ID
  3. OXYCODONE [Concomitant]
     Active Substance: OXYCODONE
     Dosage: UNK, QD

REACTIONS (2)
  - Pain [Unknown]
  - Foot operation [Unknown]

NARRATIVE: CASE EVENT DATE: 20220915
